FAERS Safety Report 19084553 (Version 1)
Quarter: 2021Q2

REPORT INFORMATION
  Report Type: Spontaneous
  Country: US (occurrence: US)
  Receive Date: 20210401
  Receipt Date: 20210401
  Transmission Date: 20210717
  Serious: No
  Sender: FDA-Public Use
  Company Number: US-IBSA PHARMA-2020-IBS-00733

PATIENT

DRUGS (3)
  1. FLECTOR [Suspect]
     Active Substance: DICLOFENAC EPOLAMINE
     Indication: NEURALGIA
     Dosage: 1 PATCH ONCE EVERY 12 HOURS
  2. TOPRICIN PAIN RELIEF [Concomitant]
  3. FLECTOR [Suspect]
     Active Substance: DICLOFENAC EPOLAMINE
     Dosage: UNK, AS NEEDED

REACTIONS (6)
  - Product use in unapproved indication [Unknown]
  - Hypoacusis [Unknown]
  - Off label use [Unknown]
  - Visual impairment [Unknown]
  - Reading disorder [Unknown]
  - Intentional product misuse [Unknown]
